FAERS Safety Report 19192526 (Version 22)
Quarter: 2022Q2

REPORT INFORMATION
  Report Type: Spontaneous
  Country: US (occurrence: US)
  Receive Date: 20210428
  Receipt Date: 20220627
  Transmission Date: 20220721
  Serious: Yes (Other)
  Sender: FDA-Public Use
  Company Number: US-PFIZER INC-2021432292

PATIENT
  Age: 72 Year
  Sex: Female

DRUGS (5)
  1. PREMARIN [Suspect]
     Active Substance: ESTROGENS, CONJUGATED
     Dosage: 0.625 MG, 1X/DAY
  2. PREMARIN [Suspect]
     Active Substance: ESTROGENS, CONJUGATED
     Dosage: UNK, ALTERNATE DAY (EVERY OTHER DAY)
  3. PREMARIN [Suspect]
     Active Substance: ESTROGENS, CONJUGATED
     Dosage: 0.625 MG, 1X/DAY
  4. PREMARIN [Suspect]
     Active Substance: ESTROGENS, CONJUGATED
     Dosage: UNK, ALTERNATE DAY (EVERY OTHER DAY)
  5. PREMARIN [Suspect]
     Active Substance: ESTROGENS, CONJUGATED
     Dosage: UNK, AS NEEDED

REACTIONS (13)
  - Blindness unilateral [Unknown]
  - Herpes ophthalmic [Unknown]
  - Herpes zoster [Unknown]
  - Eye pain [Not Recovered/Not Resolved]
  - Dysphonia [Unknown]
  - Memory impairment [Unknown]
  - Malaise [Unknown]
  - Scar [Unknown]
  - Illness [Unknown]
  - Fatigue [Unknown]
  - Urticaria [Unknown]
  - Product dispensing error [Unknown]
  - Intentional product misuse [Unknown]

NARRATIVE: CASE EVENT DATE: 20180101
